FAERS Safety Report 6736907-X (Version None)
Quarter: 2010Q2

REPORT INFORMATION
  Report Type: 
  Country: None (occurrence: None)
  Receive Date: 20100521
  Receipt Date: 20100511
  Transmission Date: 20101027
  Serious: Yes (Hospitalization, Other)
  Sender: FDA-Public Use
  Company Number: US-AMGEN-QUU387593

PATIENT
  Sex: Female
  Weight: 56.8 kg

DRUGS (4)
  1. NPLATE [Suspect]
     Indication: IDIOPATHIC THROMBOCYTOPENIC PURPURA
     Route: 058
     Dates: start: 20080731
  2. METHOTREXATE [Suspect]
     Dates: start: 20090408, end: 20090617
  3. PREDNISONE [Concomitant]
     Dates: start: 20090508, end: 20090603
  4. CELLCEPT [Concomitant]
     Dates: start: 20080505, end: 20090210

REACTIONS (4)
  - DEPRESSION [None]
  - HAEMORRHAGE INTRACRANIAL [None]
  - IDIOPATHIC THROMBOCYTOPENIC PURPURA [None]
  - SINUSITIS [None]
